FAERS Safety Report 8076665-2 (Version None)
Quarter: 2012Q1

REPORT INFORMATION
  Report Type: 
  Country: None (occurrence: None)
  Receive Date: 20120127
  Receipt Date: 20120119
  Transmission Date: 20120608
  Serious: Yes (Hospitalization)
  Sender: FDA-Public Use
  Company Number: US-BAYER-2012-008043

PATIENT
  Age: 29 Year
  Sex: Female
  Weight: 84 kg

DRUGS (7)
  1. WELLBUTRIN XL [Concomitant]
     Dosage: 150 MG, QD
  2. VICODIN [Concomitant]
  3. NAPROXEN (ALEVE) [Concomitant]
  4. DIET PILL [Concomitant]
  5. TYLENOL PM [Concomitant]
  6. VICTAN [Concomitant]
  7. YASMIN [Suspect]
     Dosage: UNK
     Dates: start: 20040809

REACTIONS (3)
  - ABDOMINAL PAIN UPPER [None]
  - PLEURISY [None]
  - PULMONARY EMBOLISM [None]
